FAERS Safety Report 11711686 (Version 1)
Quarter: 2015Q4

REPORT INFORMATION
  Report Type: Spontaneous
  Country: US (occurrence: US)
  Receive Date: 20151104
  Receipt Date: 20151104
  Transmission Date: 20160304
  Serious: No
  Sender: FDA-Public Use
  Company Number: US-ELI_LILLY_AND_COMPANY-US201104003246

PATIENT
  Age: 80 Year
  Sex: Female

DRUGS (1)
  1. FORTEO [Suspect]
     Active Substance: TERIPARATIDE
     Indication: OSTEOPOROSIS
     Dosage: 20 UG, QD
     Route: 065
     Dates: start: 20110407, end: 20110407

REACTIONS (9)
  - Abdominal discomfort [Unknown]
  - Headache [Recovering/Resolving]
  - Abdominal distension [Recovering/Resolving]
  - Adverse drug reaction [Unknown]
  - Muscle spasms [Recovering/Resolving]
  - Abdominal pain [Unknown]
  - Irritable bowel syndrome [Unknown]
  - Nausea [Recovering/Resolving]
  - Constipation [Unknown]

NARRATIVE: CASE EVENT DATE: 20110407
